FAERS Safety Report 9834098 (Version 1)
Quarter: 2014Q1

REPORT INFORMATION
  Report Type: Spontaneous
  Country: US (occurrence: US)
  Receive Date: 20140122
  Receipt Date: 20140122
  Transmission Date: 20141002
  Serious: Yes (Hospitalization)
  Sender: FDA-Public Use
  Company Number: US-BAYER-2014-009685

PATIENT
  Age: 46 Year
  Sex: Female
  Weight: 46.71 kg

DRUGS (14)
  1. YAZ [Suspect]
  2. LIDOCAINE [Concomitant]
     Dosage: 5 %, UNK
  3. DOXYCYCLINE [Concomitant]
     Dosage: 50 MG, UNK
  4. MIRALAX [Concomitant]
  5. WELLBUTRIN [Concomitant]
     Dosage: 150 MG, UNK
  6. DILAUDID [Concomitant]
     Indication: MUSCULOSKELETAL DISCOMFORT
     Dosage: 2 MG, UNK
  7. AMOXICILLIN [Concomitant]
     Dosage: 500 MG, UNK
  8. AMOXICILLIN [Concomitant]
     Dosage: 250 MG, UNK
  9. CYMBALTA [Concomitant]
     Dosage: 60 MG, UNK
  10. AMBIEN [Concomitant]
     Dosage: 10 MG, UNK
  11. LYRICA [Concomitant]
     Dosage: 150 MG, UNK
  12. TRAZODONE [Concomitant]
     Dosage: 50 MG, UNK
  13. ESTRACE [Concomitant]
  14. ATIVAN [Concomitant]
     Indication: ANXIETY

REACTIONS (1)
  - Pulmonary embolism [Recovered/Resolved]
